FAERS Safety Report 11692998 (Version 1)
Quarter: 2015Q4

REPORT INFORMATION
  Report Type: Spontaneous
  Country: US (occurrence: None)
  Receive Date: 20151102
  Receipt Date: 20151102
  Transmission Date: 20160304
  Serious: Yes (Life-Threatening, Hospitalization)
  Sender: FDA-Public Use
  Company Number: None

PATIENT
  Age: 64 Year
  Sex: Female
  Weight: 71.1 kg

DRUGS (16)
  1. AFINITOR [Suspect]
     Active Substance: EVEROLIMUS
     Indication: BREAST CANCER
     Dosage: 1 PILL
     Route: 048
     Dates: start: 20150613, end: 20150713
  2. NBI-OSTEO -K MINIS (200MG CA, 22.5MG K, 1000IU D) [Concomitant]
  3. BARLENIE-OMEGA SWIRL, ULTRA HIGH POTENCY [Concomitant]
  4. OMEPRAZOLE (PRILOSEC) [Concomitant]
  5. CELEXA [Concomitant]
     Active Substance: CITALOPRAM HYDROBROMIDE
  6. IBUPROFEN (ADVIL) [Concomitant]
  7. POTASSIUM CHLORIDE (K-DUR) [Concomitant]
  8. HYDROCHLOROTHIAZIDE. [Concomitant]
     Active Substance: HYDROCHLOROTHIAZIDE
  9. ROXICODONE [Concomitant]
     Active Substance: OXYCODONE HYDROCHLORIDE
  10. AFINITOR [Suspect]
     Active Substance: EVEROLIMUS
     Indication: METASTASES TO BONE
     Dosage: 1 PILL
     Route: 048
     Dates: start: 20150613, end: 20150713
  11. SIMVASTATIN (ZOCOR) [Concomitant]
  12. INTEGRATIVE-UBQH [Concomitant]
  13. AFINITOR [Suspect]
     Active Substance: EVEROLIMUS
     Indication: BREAST CANCER
     Dosage: 1 PILL
     Route: 048
     Dates: start: 20150723, end: 20151027
  14. AFINITOR [Suspect]
     Active Substance: EVEROLIMUS
     Indication: METASTASES TO BONE
     Dosage: 1 PILL
     Route: 048
     Dates: start: 20150723, end: 20151027
  15. HYDROCORTISONE. [Concomitant]
     Active Substance: HYDROCORTISONE
  16. ZOMETA [Concomitant]
     Active Substance: ZOLEDRONIC ACID

REACTIONS (13)
  - Blood alkaline phosphatase increased [None]
  - Gastrointestinal oedema [None]
  - Jaundice [None]
  - Ascites [None]
  - Aspartate aminotransferase increased [None]
  - Hepatitis [None]
  - Alanine aminotransferase increased [None]
  - Toxicity to various agents [None]
  - Gastrointestinal wall thickening [None]
  - Inflammatory bowel disease [None]
  - Abdominal pain [None]
  - Blood bilirubin increased [None]
  - Infection [None]

NARRATIVE: CASE EVENT DATE: 20151029
